FAERS Safety Report 12395293 (Version 2)
Quarter: 2016Q2

REPORT INFORMATION
  Report Type: Report from Study
  Country: DK (occurrence: DK)
  Receive Date: 20160523
  Receipt Date: 20160602
  Transmission Date: 20160815
  Serious: Yes (Hospitalization)
  Sender: FDA-Public Use
  Company Number: DK-GLAXOSMITHKLINE-DK2016067406

PATIENT
  Sex: Male
  Weight: 136.3 kg

DRUGS (3)
  1. BLINDED ALBIGLUTIDE [Suspect]
     Active Substance: ALBIGLUTIDE
     Indication: TYPE 2 DIABETES MELLITUS
     Dosage: 30 MG, WE
     Route: 058
     Dates: start: 20150902
  2. BLINDED PLACEBO [Suspect]
     Active Substance: INVESTIGATIONAL PRODUCT
     Indication: TYPE 2 DIABETES MELLITUS
     Dosage: 30 MG, WE
     Route: 058
     Dates: start: 20150902
  3. ZINACEF [Suspect]
     Active Substance: CEFUROXIME SODIUM
     Indication: ADRENALECTOMY
     Route: 042
     Dates: start: 20160218, end: 20160218

REACTIONS (1)
  - Adrenal neoplasm [Recovered/Resolved]
